FAERS Safety Report 6425499-0 (Version None)
Quarter: 2009Q4

REPORT INFORMATION
  Report Type: 
  Country: None (occurrence: None)
  Receive Date: 20091103
  Receipt Date: 20091028
  Transmission Date: 20100525
  Serious: Yes (Life-Threatening, Hospitalization, Disabling, Other)
  Sender: FDA-Public Use
  Company Number: IN-ELI_LILLY_AND_COMPANY-IN200801005668

PATIENT
  Sex: Female
  Weight: 67 kg

DRUGS (50)
  1. GEMCITABINE HCL [Suspect]
     Indication: BREAST CANCER METASTATIC
     Dosage: 1000 MG/M2 (1700 MG), ON D1 AND D8 EVERY 3 WEEKS
     Route: 042
     Dates: start: 20071130
  2. GEMCITABINE HCL [Suspect]
     Dosage: 750 MG/M2 (1250 MG), ON D1 AND D8 EVERY 3 WEEKS
     Route: 042
     Dates: start: 20080111
  3. VINFLUNINE [Suspect]
     Indication: BREAST CANCER METASTATIC
     Dosage: 320 MG/M2 (550 MG), ON D1 EVERY 3 WEEKS
     Route: 042
     Dates: start: 20071130
  4. VINFLUNINE [Suspect]
     Dosage: 280 MG/M2 (475 MG), ON D1 EVERY 3 WEEKS
     Route: 042
     Dates: start: 20080111
  5. GRANISETRON HCL [Concomitant]
     Dosage: UNK, UNKNOWN
     Route: 065
     Dates: start: 20071130, end: 20071130
  6. GRANISETRON HCL [Concomitant]
     Dosage: UNK, UNKNOWN
     Route: 065
     Dates: start: 20071221, end: 20071224
  7. GRANISETRON HCL [Concomitant]
     Dosage: UNK, UNKNOWN
     Route: 065
     Dates: start: 20071228, end: 20071228
  8. GRANISETRON HCL [Concomitant]
     Dosage: UNK, UNKNOWN
     Route: 065
     Dates: start: 20080111, end: 20080114
  9. DEXAMETHASONE [Concomitant]
     Dosage: UNK, UNKNOWN
     Route: 065
     Dates: start: 20071130, end: 20071202
  10. DEXAMETHASONE [Concomitant]
     Dosage: UNK, UNKNOWN
     Route: 065
     Dates: start: 20071221, end: 20071224
  11. DEXAMETHASONE [Concomitant]
     Dosage: UNK, UNKNOWN
     Route: 065
     Dates: start: 20071228, end: 20071228
  12. DEXAMETHASONE [Concomitant]
     Dosage: UNK, UNKNOWN
     Route: 065
     Dates: start: 20080111, end: 20080114
  13. NEXIUM [Concomitant]
     Dosage: UNK, UNKNOWN
     Route: 065
     Dates: start: 20071130, end: 20071130
  14. NEXIUM [Concomitant]
     Dosage: UNK, UNKNOWN
     Route: 065
     Dates: start: 20071205, end: 20071205
  15. PERINORM [Concomitant]
     Dosage: UNK, UNKNOWN
     Route: 065
     Dates: start: 20071130, end: 20071130
  16. PERINORM [Concomitant]
     Dosage: UNK, UNKNOWN
     Route: 065
     Dates: start: 20071205, end: 20071205
  17. ISPAGHULA [Concomitant]
     Dosage: UNK, UNKNOWN
     Route: 065
     Dates: start: 20071129, end: 20071207
  18. ISPAGHULA [Concomitant]
     Dosage: UNK, UNKNOWN
     Route: 065
     Dates: start: 20071221, end: 20080118
  19. SODIUM PICOSULFATE [Concomitant]
     Dosage: UNK, UNKNOWN
     Route: 065
     Dates: start: 20071130, end: 20071207
  20. ATENOLOL [Concomitant]
     Dosage: UNK, UNKNOWN
     Route: 065
     Dates: start: 20020101, end: 20080118
  21. COMBIFLAM [Concomitant]
     Dosage: UNK, UNKNOWN
     Route: 065
     Dates: start: 20071129, end: 20071201
  22. PANTOPRAZOLE [Concomitant]
     Dosage: UNK, UNKNOWN
     Route: 065
     Dates: start: 20071130, end: 20071202
  23. PANTOPRAZOLE [Concomitant]
     Dosage: UNK, UNKNOWN
     Route: 065
     Dates: start: 20071205, end: 20071207
  24. PANTOPRAZOLE [Concomitant]
     Dosage: UNK, UNKNOWN
     Route: 065
     Dates: start: 20071221, end: 20080118
  25. MULTI-VITAMIN [Concomitant]
     Dosage: UNK, UNKNOWN
     Route: 065
     Dates: start: 20071130
  26. BETADINE [Concomitant]
     Dosage: UNK, UNKNOWN
     Route: 065
     Dates: start: 20071130, end: 20071211
  27. CONTRAMAL [Concomitant]
     Dosage: UNK, UNKNOWN
     Route: 065
     Dates: start: 20071201, end: 20071204
  28. FOLVITE [Concomitant]
     Dosage: UNK, UNKNOWN
     Route: 065
     Dates: start: 20071205, end: 20071211
  29. CHOLINE SALICYLATE [Concomitant]
     Dosage: UNK, UNKNOWN
     Route: 065
     Dates: start: 20071205, end: 20071211
  30. GELUSIL [Concomitant]
     Dosage: UNK, UNKNOWN
     Route: 065
     Dates: start: 20071205, end: 20071211
  31. DOMPERIDONE [Concomitant]
     Dosage: UNK, UNKNOWN
     Route: 065
     Dates: start: 20071205, end: 20071207
  32. DULCOLAX [Concomitant]
     Dosage: UNK, UNKNOWN
     Route: 065
     Dates: start: 20071205, end: 20071205
  33. METOCLOPRAMIDE [Concomitant]
     Dosage: UNK, UNKNOWN
     Route: 065
     Dates: start: 20071221, end: 20071221
  34. METOCLOPRAMIDE [Concomitant]
     Dosage: UNK, UNKNOWN
     Route: 065
     Dates: start: 20080111, end: 20080114
  35. ESOMEPRAZOLE MAGNESIUM [Concomitant]
     Dosage: UNK, UNKNOWN
     Route: 065
     Dates: start: 20071221, end: 20071221
  36. ESOMEPRAZOLE MAGNESIUM [Concomitant]
     Dosage: UNK, UNKNOWN
     Route: 065
     Dates: start: 20071228, end: 20071228
  37. ESOMEPRAZOLE MAGNESIUM [Concomitant]
     Dosage: UNK, UNKNOWN
     Route: 065
     Dates: start: 20080111, end: 20080111
  38. PROMETHAZINE [Concomitant]
     Dosage: UNK, UNKNOWN
     Route: 065
     Dates: start: 20071221, end: 20071221
  39. PROMETHAZINE [Concomitant]
     Dosage: UNK, UNKNOWN
     Route: 065
     Dates: start: 20071228, end: 20080101
  40. PROMETHAZINE [Concomitant]
     Dosage: UNK, UNKNOWN
     Route: 065
     Dates: start: 20080111, end: 20080114
  41. NIMESULIDE [Concomitant]
     Dosage: UNK, UNKNOWN
     Route: 065
     Dates: start: 20071221, end: 20071224
  42. NIMESULIDE [Concomitant]
     Dosage: UNK, UNKNOWN
     Route: 065
     Dates: start: 20071228, end: 20080114
  43. POVIDONE IODINE [Concomitant]
     Dosage: UNK, UNKNOWN
     Route: 065
     Dates: start: 20071221
  44. SODIUM PICOSULFATE [Concomitant]
     Dosage: UNK, UNKNOWN
     Route: 065
     Dates: start: 20071221, end: 20071228
  45. TRYPTOMER [Concomitant]
     Dosage: UNK, UNKNOWN
     Route: 065
     Dates: start: 20071227, end: 20080118
  46. NEUPOGEN [Concomitant]
     Dosage: UNK, UNKNOWN
     Route: 065
     Dates: start: 20071228, end: 20071231
  47. FOLIC ACID [Concomitant]
     Dosage: UNK, UNKNOWN
     Route: 065
     Dates: start: 20071228, end: 20080101
  48. BECOSULES /01353601/ [Concomitant]
     Dosage: UNK, UNKNOWN
     Route: 065
  49. DIMETICONE [Concomitant]
     Dosage: UNK, UNKNOWN
     Route: 065
     Dates: start: 20071228, end: 20080101
  50. ENEMAS [Concomitant]
     Dosage: UNK, UNKNOWN
     Route: 065
     Dates: start: 20071228, end: 20071228

REACTIONS (4)
  - DYSPNOEA [None]
  - HYPOTENSION [None]
  - SEPSIS [None]
  - URINARY TRACT INFECTION [None]
